FAERS Safety Report 9710063 (Version 3)
Quarter: 2013Q4

REPORT INFORMATION
  Report Type: Spontaneous
  Country: US (occurrence: US)
  Receive Date: 20131126
  Receipt Date: 20131226
  Transmission Date: 20140711
  Serious: Yes (Hospitalization, Other)
  Sender: FDA-Public Use
  Company Number: US-JNJFOC-20131110924

PATIENT
  Age: 70 Year
  Sex: Female
  Weight: 73.03 kg

DRUGS (5)
  1. XARELTO [Suspect]
     Indication: THROMBOSIS PROPHYLAXIS
     Dosage: DAILY
     Route: 048
     Dates: start: 20130912
  2. XARELTO [Suspect]
     Indication: KNEE ARTHROPLASTY
     Dosage: DAILY
     Route: 048
     Dates: start: 20130912
  3. CALCIUM [Concomitant]
     Dosage: 600/400
     Route: 065
  4. FISH OIL [Concomitant]
     Route: 065
  5. HYDROCHLOROTHIAZIDE [Concomitant]
     Route: 065

REACTIONS (4)
  - Peripheral embolism [Unknown]
  - Deep vein thrombosis [Recovering/Resolving]
  - Pulmonary embolism [Recovering/Resolving]
  - Cavernous sinus thrombosis [Recovering/Resolving]
